FAERS Safety Report 11234227 (Version 2)
Quarter: 2015Q3

REPORT INFORMATION
  Report Type: Spontaneous
  Country: DE (occurrence: DE)
  Receive Date: 20150702
  Receipt Date: 20150710
  Transmission Date: 20151125
  Serious: Yes (Other)
  Sender: FDA-Public Use
  Company Number: DE-SUN PHARMACEUTICAL INDUSTRIES LTD-2015RR-099712

PATIENT

DRUGS (5)
  1. AMLODIPINE [Suspect]
     Active Substance: AMLODIPINE BESYLATE
     Indication: PULMONARY ARTERIAL HYPERTENSION
     Dosage: 1.25 MG, BID
     Route: 048
     Dates: start: 20131004, end: 20140626
  2. SILDENAFIL. [Suspect]
     Active Substance: SILDENAFIL
     Indication: PULMONARY ARTERIAL HYPERTENSION
     Dosage: 20 MG, TID
     Route: 048
     Dates: start: 20131004, end: 20140626
  3. NEOVIN [Concomitant]
     Indication: PROPHYLAXIS OF NEURAL TUBE DEFECT
     Dosage: 0.4 MG/D
     Route: 048
  4. CELESTAN [Concomitant]
     Active Substance: BETAMETHASONE
     Indication: MATERNAL THERAPY TO ENHANCE FOETAL LUNG MATURITY
     Dosage: 12 MG, DAILY
     Route: 065
     Dates: start: 20140514, end: 20140515
  5. IMIDIN FUR KINDER [Concomitant]
     Indication: PRODUCT USED FOR UNKNOWN INDICATION
     Dosage: AT NIGHT
     Route: 045
     Dates: start: 20140505, end: 20140505

REACTIONS (1)
  - Oligohydramnios [Recovered/Resolved]
